FAERS Safety Report 10538298 (Version 3)
Quarter: 2015Q1

REPORT INFORMATION
  Report Type: Spontaneous
  Country: IT (occurrence: None)
  Receive Date: 20141021
  Receipt Date: 20150209
  Transmission Date: 20150720
  Serious: Yes (Hospitalization)
  Sender: FDA-Public Use
  Company Number: NL01PV14.37636

PATIENT
  Age: 74 Year
  Sex: Male

DRUGS (2)
  1. CISTALGAN (FLAVOXATE HYDROCHLORIDE, PROPYPHENAZONE) [Concomitant]
  2. UNKNOWN (TAMSULOSIN) UNKNOWN [Suspect]
     Active Substance: TAMSULOSIN
     Indication: PROSTATIC DISORDER
     Route: 048
     Dates: start: 20140927, end: 20140928

REACTIONS (3)
  - Hyperhidrosis [None]
  - Malaise [None]
  - Syncope [None]

NARRATIVE: CASE EVENT DATE: 20140928
